FAERS Safety Report 8111323-7 (Version None)
Quarter: 2012Q1

REPORT INFORMATION
  Report Type: 
  Country: None (occurrence: None)
  Receive Date: 20120203
  Receipt Date: 20110824
  Transmission Date: 20120608
  Serious: No
  Sender: FDA-Public Use
  Company Number: US-GLAXOSMITHKLINE-A0943252A

PATIENT
  Age: 48 Year
  Sex: Female
  Weight: 90.9 kg

DRUGS (10)
  1. SERTRALINE HYDROCHLORIDE [Suspect]
     Indication: PRODUCT USED FOR UNKNOWN INDICATION
     Dosage: 100MG TWICE PER DAY
     Route: 065
  2. CLONIDINE [Suspect]
     Indication: PRODUCT USED FOR UNKNOWN INDICATION
     Dosage: .1MG TWICE PER DAY
     Route: 065
  3. PREMARIN [Suspect]
     Indication: PRODUCT USED FOR UNKNOWN INDICATION
     Dosage: .625MG PER DAY
     Route: 065
  4. DOXYCYCLINE [Suspect]
     Indication: PRODUCT USED FOR UNKNOWN INDICATION
     Dosage: 40MG PER DAY
     Route: 065
  5. MEDROXYPROGESTERONE [Suspect]
     Indication: PRODUCT USED FOR UNKNOWN INDICATION
     Dosage: 10MG PER DAY
     Route: 065
  6. NORTRIPTYLINE HCL [Suspect]
     Indication: PRODUCT USED FOR UNKNOWN INDICATION
     Dosage: 25MG SEE DOSAGE TEXT
     Route: 065
  7. LAMOTRIGINE [Suspect]
     Indication: MIGRAINE
     Dosage: 100MG PER DAY
     Route: 048
     Dates: start: 20110302
  8. NEXIUM [Suspect]
     Indication: PRODUCT USED FOR UNKNOWN INDICATION
     Dosage: 40MG PER DAY
     Route: 065
  9. VYTORIN [Suspect]
     Indication: PRODUCT USED FOR UNKNOWN INDICATION
     Route: 065
  10. BYSTOLIC [Suspect]
     Indication: PRODUCT USED FOR UNKNOWN INDICATION
     Dosage: 5MG PER DAY
     Route: 065

REACTIONS (7)
  - TONGUE ULCERATION [None]
  - OFF LABEL USE [None]
  - GLOSSODYNIA [None]
  - CANDIDIASIS [None]
  - DRY MOUTH [None]
  - GLOSSITIS [None]
  - TONGUE DISORDER [None]
